FAERS Safety Report 15402774 (Version 1)
Quarter: 2018Q3

REPORT INFORMATION
  Report Type: Spontaneous
  Country: US (occurrence: US)
  Receive Date: 20180917
  Receipt Date: 20180917
  Transmission Date: 20181010
  Serious: No
  Sender: FDA-Public Use
  Company Number: None

PATIENT
  Age: 69 Year
  Sex: Female
  Weight: 57.6 kg

DRUGS (4)
  1. BABY ASPIRIN [Concomitant]
     Active Substance: ASPIRIN
  2. SCOPOLAMINE TRANDERMAL SYSTEM [Suspect]
     Active Substance: SCOPOLAMINE
     Indication: MOTION SICKNESS
     Dosage: ?          QUANTITY:1 PATCH(ES);OTHER FREQUENCY:3 DAYS;?
     Route: 062
     Dates: start: 20180907, end: 20180914
  3. VIT. B COMPLEX [Concomitant]
  4. CALCIUM WITH VIT D3 [Concomitant]

REACTIONS (7)
  - Somnolence [None]
  - Head discomfort [None]
  - Thirst [None]
  - Product substitution issue [None]
  - Diplopia [None]
  - Balance disorder [None]
  - Disturbance in attention [None]

NARRATIVE: CASE EVENT DATE: 20180907
